FAERS Safety Report 16885316 (Version 1)
Quarter: 2019Q4

REPORT INFORMATION
  Report Type: Spontaneous
  Country: US (occurrence: US)
  Receive Date: 20190809
  Receipt Date: 20190809
  Transmission Date: 20200122
  Serious: Yes (Death)
  Sender: FDA-Public Use
  Company Number: None

PATIENT
  Age: 69 Year
  Sex: Male

DRUGS (3)
  1. GEMFIBROZIL. [Concomitant]
     Active Substance: GEMFIBROZIL
  2. FOSAMAX [Concomitant]
     Active Substance: ALENDRONATE SODIUM
  3. TACROLIMUS 1MG [Suspect]
     Active Substance: TACROLIMUS
     Route: 048

REACTIONS (1)
  - Death [None]
